FAERS Safety Report 4756134-5 (Version None)
Quarter: 2005Q3

REPORT INFORMATION
  Report Type: 
  Country: None (occurrence: None)
  Receive Date: 20050830
  Receipt Date: 20050819
  Transmission Date: 20060218
  Serious: Yes (Hospitalization)
  Sender: FDA-Public Use
  Company Number: 2005CG01405

PATIENT
  Age: 72 Year
  Sex: Male

DRUGS (12)
  1. OMEPRAZOLE [Suspect]
     Route: 048
  2. BACTRIM [Suspect]
     Route: 048
  3. TARGOCID [Suspect]
     Route: 042
  4. LOVENOX [Suspect]
     Indication: EMBOLISM VENOUS
     Route: 058
  5. NEURONTIN [Suspect]
     Indication: PAIN
     Route: 048
  6. SKENAN LP [Suspect]
     Indication: PAIN
     Route: 048
  7. LAROXYL [Suspect]
  8. FORTUM [Suspect]
  9. LERCAN [Suspect]
  10. UNSPECIFIED CHEMOTHERAPY [Concomitant]
  11. NEUPOGEN [Concomitant]
  12. EPO [Concomitant]

REACTIONS (5)
  - CHRONIC LYMPHOCYTIC LEUKAEMIA [None]
  - COMA [None]
  - CONDITION AGGRAVATED [None]
  - GENERAL PHYSICAL HEALTH DETERIORATION [None]
  - VASCULITIS NECROTISING [None]
